FAERS Safety Report 7297075-1 (Version None)
Quarter: 2011Q1

REPORT INFORMATION
  Report Type: 
  Country: None (occurrence: None)
  Receive Date: 20110216
  Receipt Date: 20110204
  Transmission Date: 20110831
  Serious: Yes (Other)
  Sender: FDA-Public Use
  Company Number: SE-TEVA-267026ISR

PATIENT
  Sex: Female

DRUGS (1)
  1. DOXYCYCLINE [Suspect]
     Indication: PNEUMONIA
     Dates: end: 20100505

REACTIONS (1)
  - STEVENS-JOHNSON SYNDROME [None]
